FAERS Safety Report 17560153 (Version 1)
Quarter: 2020Q1

REPORT INFORMATION
  Report Type: Spontaneous
  Country: US (occurrence: US)
  Receive Date: 20200319
  Receipt Date: 20200319
  Transmission Date: 20200409
  Serious: No
  Sender: FDA-Public Use
  Company Number: US-PFIZER INC-2020117379

PATIENT
  Age: 70 Year
  Sex: Female
  Weight: 61.23 kg

DRUGS (7)
  1. VITAMIN B12 [Concomitant]
     Active Substance: CYANOCOBALAMIN
     Dosage: UNK
  2. CHANTIX [Suspect]
     Active Substance: VARENICLINE TARTRATE
     Indication: SMOKING CESSATION THERAPY
     Dosage: 0.5 MG, AS NEEDED
  3. BUPROPION. [Concomitant]
     Active Substance: BUPROPION
     Dosage: UNK
  4. NICORETTE [Concomitant]
     Active Substance: NICOTINE
     Dosage: UNK
  5. NICOTINE [NICOTINE POLACRILEX] [Concomitant]
     Dosage: 4 MG, UNK
  6. NICOTINE TRANSDERMAL SYSTEM [Concomitant]
     Active Substance: NICOTINE
     Indication: SMOKING CESSATION THERAPY
     Dosage: 21 MG, UNK
  7. CHANTIX [Suspect]
     Active Substance: VARENICLINE TARTRATE
     Dosage: 0.5 MG, 1X/DAY (0.5 MG ONCE A DAY SO SHE TAKES IT ONCE IN THE MORNING)

REACTIONS (6)
  - Thinking abnormal [Unknown]
  - Tinnitus [Unknown]
  - Disease recurrence [Unknown]
  - Depressed mood [Unknown]
  - Weight increased [Unknown]
  - Abnormal dreams [Unknown]
